FAERS Safety Report 7593546-9 (Version None)
Quarter: 2011Q2

REPORT INFORMATION
  Report Type: 
  Country: None (occurrence: None)
  Receive Date: 20110628
  Receipt Date: 20110627
  Transmission Date: 20111010
  Serious: Yes (Hospitalization)
  Sender: FDA-Public Use
  Company Number: SP03753

PATIENT
  Age: 78 Year
  Sex: Male

DRUGS (5)
  1. FLUNITRAZEPAM (INJECTION FOR INFUSION) [Suspect]
     Dosage: INTRAVENOUS
     Route: 042
     Dates: start: 20110603, end: 20110603
  2. DEMEROL [Suspect]
     Dosage: INTRAMUSCULAR
     Route: 030
     Dates: start: 20110603, end: 20110603
  3. BENIPIPINE HYDROCHLORIDE [Concomitant]
  4. VISICOL [Suspect]
     Indication: BOWEL PREPARATION
     Dosage: (50 GM), ORAL
     Route: 048
     Dates: start: 20110603, end: 20110603
  5. CANDESARTAN CILEXETIL [Concomitant]

REACTIONS (2)
  - RENAL DISORDER [None]
  - LOSS OF CONSCIOUSNESS [None]
